FAERS Safety Report 5470526-0 (Version None)
Quarter: 2007Q3

REPORT INFORMATION
  Report Type: 
  Country: None (occurrence: None)
  Receive Date: 20070927
  Receipt Date: 20070927
  Transmission Date: 20080115
  Serious: No
  Sender: FDA-Public Use
  Company Number: None

PATIENT
  Sex: Female
  Weight: 72.5755 kg

DRUGS (1)
  1. ALLI [Suspect]
     Indication: WEIGHT CONTROL
     Dosage: 60 MG 3 X A DAY PO ALMOST 30 DAYS
     Route: 048
     Dates: start: 20070814, end: 20070921

REACTIONS (2)
  - ABDOMINAL PAIN [None]
  - GAIT DISTURBANCE [None]
